FAERS Safety Report 6267511-8 (Version None)
Quarter: 2009Q3

REPORT INFORMATION
  Report Type: 
  Country: None (occurrence: None)
  Receive Date: 20090714
  Receipt Date: 20090707
  Transmission Date: 20100115
  Serious: Yes (Hospitalization)
  Sender: FDA-Public Use
  Company Number: US-MERCK-0907USA00967

PATIENT
  Age: 68 Year
  Sex: Male

DRUGS (7)
  1. JANUMET [Suspect]
     Indication: DIABETES MELLITUS
     Route: 048
     Dates: start: 20090603, end: 20090601
  2. JANUMET [Suspect]
     Route: 048
     Dates: start: 20090622, end: 20090706
  3. BENICAR [Concomitant]
     Route: 065
  4. HYDROCHLOROTHIAZIDE [Concomitant]
     Route: 065
  5. LIPITOR [Concomitant]
     Route: 065
  6. NIASPAN [Suspect]
     Route: 065
     Dates: end: 20090101
  7. NIASPAN [Suspect]
     Route: 065
     Dates: start: 20090622, end: 20090101

REACTIONS (2)
  - BLOOD UREA INCREASED [None]
  - RENAL FAILURE ACUTE [None]
